FAERS Safety Report 5616707-4 (Version None)
Quarter: 2008Q1

REPORT INFORMATION
  Report Type: 
  Country: None (occurrence: None)
  Receive Date: 20080207
  Receipt Date: 20080204
  Transmission Date: 20080703
  Serious: Yes (Death)
  Sender: FDA-Public Use
  Company Number: PHHY2008CA00855

PATIENT
  Age: 47 Year
  Sex: Female

DRUGS (3)
  1. CLOZARIL [Suspect]
     Indication: SCHIZOPHRENIA
     Dosage: 150 MG, BID
     Route: 048
     Dates: start: 19990805, end: 20071226
  2. EFFEXOR XR [Concomitant]
     Dosage: 150 MG, QD
  3. CODEINE SUL TAB [Concomitant]
     Dosage: 100 MG, BID

REACTIONS (1)
  - PULMONARY EMBOLISM [None]
